FAERS Safety Report 7616748-1 (Version None)
Quarter: 2011Q3

REPORT INFORMATION
  Report Type: 
  Country: None (occurrence: None)
  Receive Date: 20110718
  Receipt Date: 20110708
  Transmission Date: 20111222
  Serious: Yes (Other)
  Sender: FDA-Public Use
  Company Number: US-BIOGENIDEC-2011BI025581

PATIENT
  Age: 57 Year
  Sex: Male

DRUGS (2)
  1. TYSABRI [Suspect]
     Indication: CROHN'S DISEASE
     Route: 042
     Dates: start: 20090120
  2. LISINOPRIL [Concomitant]
     Indication: HYPERTENSION

REACTIONS (1)
  - ANGIOEDEMA [None]
